FAERS Safety Report 6417212-8 (Version None)
Quarter: 2009Q4

REPORT INFORMATION
  Report Type: 
  Country: None (occurrence: None)
  Receive Date: 20091028
  Receipt Date: 20091020
  Transmission Date: 20100525
  Serious: Yes (Hospitalization)
  Sender: FDA-Public Use
  Company Number: IT-ASTRAZENECA-2009SE09897

PATIENT
  Age: 28615 Day
  Sex: Male

DRUGS (7)
  1. MEPRAL [Suspect]
     Indication: HELICOBACTER GASTRITIS
     Route: 048
     Dates: start: 20090817
  2. ZIMOX [Suspect]
     Indication: HELICOBACTER GASTRITIS
     Route: 048
     Dates: start: 20090817, end: 20090818
  3. VECLAM [Suspect]
     Indication: HELICOBACTER GASTRITIS
     Route: 048
     Dates: start: 20090817, end: 20090818
  4. ACEDIUR [Concomitant]
     Route: 048
  5. LASIX [Concomitant]
  6. SUGUAN [Concomitant]
     Route: 048
  7. PRADIF [Concomitant]

REACTIONS (2)
  - DELUSION [None]
  - ERYTHEMA [None]
